FAERS Safety Report 4718750-6 (Version None)
Quarter: 2005Q3

REPORT INFORMATION
  Report Type: 
  Country: None (occurrence: None)
  Receive Date: 20050719
  Receipt Date: 20050708
  Transmission Date: 20060218
  Serious: Yes (Hospitalization, Other)
  Sender: FDA-Public Use
  Company Number: KII-2005-0017428

PATIENT
  Age: 69 Year
  Sex: Female

DRUGS (2)
  1. MORPHINE SULFATE [Suspect]
     Indication: DRUG USE FOR UNKNOWN INDICATION
     Dosage: INTRAVENOUS
     Route: 042
  2. BENZODIAZEPINE DERIVATIVES) [Suspect]
     Indication: DRUG USE FOR UNKNOWN INDICATION

REACTIONS (7)
  - BLOOD PRESSURE DECREASED [None]
  - COMA [None]
  - DRUG DISPENSING ERROR [None]
  - DRUG SCREEN POSITIVE [None]
  - INCORRECT DRUG DOSAGE FORM ADMINISTERED [None]
  - OXYGEN SATURATION DECREASED [None]
  - SOMNOLENCE [None]
